FAERS Safety Report 24110272 (Version 1)
Quarter: 2024Q3

REPORT INFORMATION
  Report Type: Report from Study
  Country: CA (occurrence: CA)
  Receive Date: 20240718
  Receipt Date: 20240718
  Transmission Date: 20241016
  Serious: Yes (Hospitalization, Other)
  Sender: HLS THERAPEUTICS
  Company Number: CA-HLS-202401679

PATIENT
  Age: 46 Year
  Sex: Male

DRUGS (11)
  1. CLOZARIL [Suspect]
     Active Substance: CLOZAPINE
     Indication: Product used for unknown indication
     Dosage: 400 MG
     Route: 048
     Dates: start: 20161003
  2. CLOZARIL [Suspect]
     Active Substance: CLOZAPINE
     Indication: Product used for unknown indication
     Dosage: 75 MG ORAL TID X 1 WEEK AND 200 MG ORAL QHS (EVERY NIGHT AT BEDTIME) X 1 WEEK 2024/05/31 2025/05/30
     Route: 048
  3. SUDAFED [Concomitant]
     Active Substance: PSEUDOEPHEDRINE HYDROCHLORIDE
     Indication: Product used for unknown indication
     Dosage: OCCASIONALLY USE.
     Route: 065
  4. GRAVOL [Concomitant]
     Active Substance: DIMENHYDRINATE
     Indication: Product used for unknown indication
     Route: 065
  5. TYLENOL [Concomitant]
     Active Substance: ACETAMINOPHEN
     Indication: Product used for unknown indication
     Route: 065
  6. ZYPREXA [Concomitant]
     Active Substance: OLANZAPINE
     Dosage: 5MG 1 ORAL BID X 1 WEEK (BEDTIME)
     Route: 048
     Dates: start: 20240626
  7. ZUCLOPENTHIXOL [Concomitant]
     Active Substance: ZUCLOPENTHIXOL
     Indication: Product used for unknown indication
     Dosage: 200MG/ML 350 MG 350 MG (BEDTIME),?EVERY 2 WEEKS X 2 WEEKS
     Route: 030
     Dates: start: 20240528
  8. SENOKOT [Concomitant]
     Active Substance: SENNOSIDES
     Indication: Product used for unknown indication
     Dosage: 8.6MG 1-2 TABLET(S) ORAL 1X/MONTH PRN
     Route: 048
     Dates: start: 20230307
  9. ATROPINE [Concomitant]
     Active Substance: ATROPINE
     Indication: Product used for unknown indication
     Dosage: DROPS 1% 1-2 DROP(S) ORAL QHS PRN X 1 MONTH
     Route: 065
     Dates: start: 20240526
  10. SYMMETREL [Concomitant]
     Active Substance: AMANTADINE HYDROCHLORIDE
     Indication: Product used for unknown indication
     Dosage: 100MG 1 CAPSULE(S) ORAL TID X 1 WEEK
     Route: 065
     Dates: start: 20240530
  11. ATIVAN [Concomitant]
     Active Substance: LORAZEPAM
     Indication: Product used for unknown indication
     Dosage: 1 MG ORAL QID X 1 WEEK (BEDTIME)
     Route: 065
     Dates: start: 20240530

REACTIONS (7)
  - Agitation [Unknown]
  - Hallucination, auditory [Unknown]
  - Blood pressure abnormal [Unknown]
  - Confusional state [Unknown]
  - Anxiety [Unknown]
  - Tachycardia [Unknown]
  - Seizure [Unknown]

NARRATIVE: CASE EVENT DATE: 20230101
